FAERS Safety Report 20091904 (Version 3)
Quarter: 2021Q4

REPORT INFORMATION
  Report Type: Spontaneous
  Country: CN (occurrence: None)
  Receive Date: 20211119
  Receipt Date: 20211220
  Transmission Date: 20220303
  Serious: Yes (Death, Hospitalization)
  Sender: FDA-Public Use
  Company Number: 2021A816618

PATIENT
  Age: 72 Year
  Sex: Male
  Weight: 50 kg

DRUGS (4)
  1. IMFINZI [Suspect]
     Active Substance: DURVALUMAB
     Indication: Small cell lung cancer extensive stage
     Dosage: 1000 MG/CYCLE
     Route: 042
     Dates: start: 20210809, end: 20210809
  2. ETOPOSIDE/CARBOPLATIN [Concomitant]
     Indication: Small cell lung cancer extensive stage
  3. CISPLATIN\ETOPOSIDE [Concomitant]
     Active Substance: CISPLATIN\ETOPOSIDE
     Indication: Small cell lung cancer extensive stage
  4. PACLITAXEL [Concomitant]
     Active Substance: PACLITAXEL

REACTIONS (2)
  - Death [Fatal]
  - Nerve injury [Unknown]

NARRATIVE: CASE EVENT DATE: 20210801
